FAERS Safety Report 7010421 (Version 2)
Quarter: 2014Q1

REPORT INFORMATION
  Report Type: Spontaneous
  Country: US (occurrence: None)
  Receive Date: 20090526
  Receipt Date: 20140206
  Transmission Date: 20141002
  Serious: Yes (Other)
  Sender: FDA-Public Use
  Company Number: 2009S1004067

PATIENT
  Age: 61 Year
  Sex: Female
  Weight: 88.91 kg

DRUGS (4)
  1. FLEET PHOSPHO-SODA ORAL SALINE LAXATIVE, GINGER-LEMON FLAVOR (ORAL SOLUTION) [Suspect]
     Indication: COLONOSCOPY
     Dosage: PO
     Route: 048
     Dates: start: 200603, end: 200603
  2. LOTREL (BENAZEPRIL HYDROCHLORIDE, AMLODIPINE BESILATE) [Concomitant]
  3. MAXZIDE (HYDROCHLOROTHIAZIDE, TRIAMTERENE) [Concomitant]
  4. CELEBREX (CELECOXIB) [Concomitant]

REACTIONS (2)
  - Renal impairment [None]
  - Renal failure acute [None]
